FAERS Safety Report 5938070-1 (Version None)
Quarter: 2008Q4

REPORT INFORMATION
  Report Type: 
  Country: None (occurrence: None)
  Receive Date: 20081031
  Receipt Date: 20081024
  Transmission Date: 20090506
  Serious: Yes (Other)
  Sender: FDA-Public Use
  Company Number: PHHY2008VE26002

PATIENT
  Sex: Female

DRUGS (5)
  1. DIOVAN [Suspect]
     Dosage: 160 MG, QD
  2. DIOVAN [Suspect]
     Dosage: 40 MG, QD
  3. NIMODIPINE [Concomitant]
  4. INDAPAMIDE [Concomitant]
  5. BENADON ^HOFFMANN^ [Concomitant]

REACTIONS (2)
  - FACIAL PALSY [None]
  - HEADACHE [None]
